FAERS Safety Report 10075934 (Version 1)
Quarter: 2014Q2

REPORT INFORMATION
  Report Type: Spontaneous
  Country: CA (occurrence: CA)
  Receive Date: 20140414
  Receipt Date: 20140414
  Transmission Date: 20141212
  Serious: Yes (Other)
  Sender: FDA-Public Use
  Company Number: CA-SA-2014SA044877

PATIENT
  Age: 68 Year
  Sex: Male

DRUGS (4)
  1. FLUDARABINE PHOSPHATE [Suspect]
     Indication: PRODUCT USED FOR UNKNOWN INDICATION
     Dosage: ENDED ON DEC 2012
     Route: 065
     Dates: start: 20121203
  2. RITUXAN [Suspect]
     Indication: PRODUCT USED FOR UNKNOWN INDICATION
     Dosage: ENDED ON DEC 2012
     Route: 065
     Dates: start: 20121203
  3. CYCLOPHOSPHAMIDE [Suspect]
     Indication: PRODUCT USED FOR UNKNOWN INDICATION
     Dosage: ENDED ON DEC 2012
     Route: 065
     Dates: start: 20121203
  4. AVASTIN [Concomitant]

REACTIONS (1)
  - Autoimmune haemolytic anaemia [Unknown]
